FAERS Safety Report 7170073-4 (Version None)
Quarter: 2010Q4

REPORT INFORMATION
  Report Type: 
  Country: None (occurrence: None)
  Receive Date: 20101214
  Receipt Date: 20101214
  Transmission Date: 20110411
  Serious: Yes (Other)
  Sender: FDA-Public Use
  Company Number: None

PATIENT
  Sex: Female
  Weight: 104.5 kg

DRUGS (2)
  1. SPIRIVA [Suspect]
     Indication: CHRONIC OBSTRUCTIVE PULMONARY DISEASE
     Dosage: 1 CAPSULE 1/DAY INHALATION; 1 CAPSULE 1/DAY INHALATION
     Route: 055
  2. SPIRIVA [Suspect]
     Indication: CHRONIC OBSTRUCTIVE PULMONARY DISEASE
     Dosage: 1 CAPSULE 1/DAY INHALATION; 1 CAPSULE 1/DAY INHALATION
     Route: 055

REACTIONS (3)
  - CONSTIPATION [None]
  - DYSURIA [None]
  - INTRAOCULAR PRESSURE INCREASED [None]
